FAERS Safety Report 5563981-9 (Version None)
Quarter: 2007Q4

REPORT INFORMATION
  Report Type: 
  Country: None (occurrence: None)
  Receive Date: 20071217
  Receipt Date: 20071205
  Transmission Date: 20080405
  Serious: Yes (Other)
  Sender: FDA-Public Use
  Company Number: DE-ELI_LILLY_AND_COMPANY-DE200712001397

PATIENT
  Age: 64 Year
  Sex: Female

DRUGS (8)
  1. BYETTA [Suspect]
     Dosage: 5 UG, 2/D
     Route: 058
     Dates: start: 20070101, end: 20070101
  2. BYETTA [Suspect]
     Dosage: 10 UG, 2/D
     Route: 058
     Dates: start: 20070101
  3. ACTOS [Concomitant]
  4. METFORMIN HCL [Concomitant]
     Dosage: 500 UNK, UNK
  5. BISOPROLOL [Concomitant]
     Dosage: 10 UNK, UNK
  6. ATACAND HCT [Concomitant]
     Dosage: 16 UNK, UNK
  7. ATACAND [Concomitant]
     Dosage: 16 UNK, UNK
  8. L-THYROXINE [Concomitant]

REACTIONS (2)
  - EXTRASYSTOLES [None]
  - HEART RATE IRREGULAR [None]
